FAERS Safety Report 4496850-6 (Version None)
Quarter: 2004Q4

REPORT INFORMATION
  Report Type: 
  Country: None (occurrence: None)
  Receive Date: 20041109
  Receipt Date: 20041027
  Transmission Date: 20050328
  Serious: Yes (Hospitalization)
  Sender: FDA-Public Use
  Company Number: FR-GLAXOSMITHKLINE-B0349467A

PATIENT
  Age: 33 Year
  Sex: Female

DRUGS (9)
  1. ZOPHREN [Suspect]
     Dosage: 1UNIT PER DAY
     Route: 042
     Dates: start: 20040811, end: 20040811
  2. DROLEPTAN [Suspect]
     Dosage: 1UNIT PER DAY
     Route: 042
     Dates: start: 20040811, end: 20040811
  3. MORPHINE CHLORHYDRATE [Suspect]
     Dosage: 100MCG SINGLE DOSE
     Route: 037
     Dates: start: 20040811, end: 20040811
  4. SYNTOCINON [Suspect]
     Dosage: 6ML PER DAY
     Route: 042
     Dates: start: 20040811, end: 20040811
  5. EPHEDRINE SUL CAP [Suspect]
     Dosage: 2UNIT PER DAY
     Route: 042
     Dates: start: 20040811, end: 20040811
  6. MARCAINE [Suspect]
     Dosage: 100MG SINGLE DOSE
     Route: 037
     Dates: start: 20040811, end: 20040811
  7. LEXOMIL [Concomitant]
     Route: 065
  8. PROZAC [Concomitant]
     Route: 065
  9. RINGER'S [Concomitant]
     Dosage: 2.5L PER DAY
     Route: 042
     Dates: start: 20040811, end: 20040811

REACTIONS (3)
  - CONFUSIONAL STATE [None]
  - HYPERHIDROSIS [None]
  - HYPOTHERMIA [None]
